FAERS Safety Report 9236968 (Version 2)
Quarter: 2013Q2

REPORT INFORMATION
  Report Type: Spontaneous
  Country: GB (occurrence: None)
  Receive Date: 20130415
  Receipt Date: 20130422
  Transmission Date: 20140414
  Serious: Yes (Other)
  Sender: FDA-Public Use
  Company Number: AUR-APL-2013-03074

PATIENT
  Age: 34 Year
  Sex: Male

DRUGS (1)
  1. RISPERIDONE [Suspect]
     Indication: SCHIZOPHRENIA
     Route: 048

REACTIONS (10)
  - Treatment noncompliance [None]
  - Akathisia [None]
  - Sexual dysfunction [None]
  - Abnormal behaviour [None]
  - Malaise [None]
  - Drug abuse [None]
  - Refusal of treatment by patient [None]
  - Thinking abnormal [None]
  - Paranoia [None]
  - Acute psychosis [None]
